FAERS Safety Report 18868092 (Version 7)
Quarter: 2022Q1

REPORT INFORMATION
  Report Type: Report from Study
  Country: CR (occurrence: CR)
  Receive Date: 20210209
  Receipt Date: 20220307
  Transmission Date: 20220424
  Serious: Yes (Other)
  Sender: FDA-Public Use
  Company Number: NVSC2021CR023943

PATIENT
  Sex: Female

DRUGS (2)
  1. SECUKINUMAB [Suspect]
     Active Substance: SECUKINUMAB
     Indication: Ankylosing spondylitis
     Dosage: 150 MG, QMO
     Route: 058
     Dates: start: 20200818
  2. SECUKINUMAB [Suspect]
     Active Substance: SECUKINUMAB
     Dosage: 150 MG, QMO
     Route: 058

REACTIONS (31)
  - Mastitis [Not Recovered/Not Resolved]
  - Viral infection [Not Recovered/Not Resolved]
  - Peptic ulcer [Unknown]
  - Ankylosing spondylitis [Unknown]
  - Malaise [Not Recovered/Not Resolved]
  - Feeling abnormal [Not Recovered/Not Resolved]
  - Discomfort [Not Recovered/Not Resolved]
  - Pain [Not Recovered/Not Resolved]
  - Peripheral swelling [Not Recovered/Not Resolved]
  - Injection site swelling [Not Recovered/Not Resolved]
  - Mobility decreased [Unknown]
  - Pulmonary pain [Unknown]
  - Pain in extremity [Unknown]
  - Arthralgia [Unknown]
  - Chest pain [Unknown]
  - Neck pain [Not Recovered/Not Resolved]
  - Acne pustular [Not Recovered/Not Resolved]
  - Breast disorder [Not Recovered/Not Resolved]
  - Abdominal discomfort [Not Recovered/Not Resolved]
  - Food intolerance [Not Recovered/Not Resolved]
  - Back pain [Unknown]
  - Ill-defined disorder [Unknown]
  - Viral pharyngitis [Not Recovered/Not Resolved]
  - Oropharyngeal pain [Unknown]
  - Dysphagia [Unknown]
  - Headache [Unknown]
  - Ear pain [Unknown]
  - Throat irritation [Recovering/Resolving]
  - Weight decreased [Unknown]
  - Red blood cell sedimentation rate abnormal [Not Recovered/Not Resolved]
  - Infection [Not Recovered/Not Resolved]

NARRATIVE: CASE EVENT DATE: 20210204
